FAERS Safety Report 15004846 (Version 4)
Quarter: 2018Q3

REPORT INFORMATION
  Report Type: Report from Study
  Country: ID (occurrence: ID)
  Receive Date: 20180613
  Receipt Date: 20180918
  Transmission Date: 20181010
  Serious: Yes (Hospitalization, Other)
  Sender: FDA-Public Use
  Company Number: ID-BAYER-2018-107790

PATIENT
  Age: 38 Year
  Sex: Male

DRUGS (2)
  1. NEXAVAR [Suspect]
     Active Substance: SORAFENIB
     Indication: RENAL CELL CARCINOMA
     Dosage: UNK
  2. NEXAVAR [Suspect]
     Active Substance: SORAFENIB
     Indication: RENAL CELL CARCINOMA
     Dosage: 800 MG DAILY
     Route: 048
     Dates: start: 20180519

REACTIONS (6)
  - Cancer pain [Recovered/Resolved with Sequelae]
  - Haemoglobin decreased [Recovered/Resolved]
  - Metastases to lung [Recovered/Resolved with Sequelae]
  - Decubitus ulcer [Recovering/Resolving]
  - Diarrhoea [Recovering/Resolving]
  - Hospitalisation [None]

NARRATIVE: CASE EVENT DATE: 201804
